FAERS Safety Report 6457054-0 (Version None)
Quarter: 2009Q4

REPORT INFORMATION
  Report Type: 
  Country: None (occurrence: None)
  Receive Date: 20091125
  Receipt Date: 20091120
  Transmission Date: 20100525
  Serious: Yes (Hospitalization)
  Sender: FDA-Public Use
  Company Number: A0822121A

PATIENT
  Age: 81 Year
  Sex: Female

DRUGS (11)
  1. AVANDIA [Suspect]
     Indication: TYPE 2 DIABETES MELLITUS
     Dosage: 2MG PER DAY
     Route: 048
     Dates: start: 20060101
  2. PRILOSEC [Concomitant]
  3. GLYBURIDE [Concomitant]
  4. LASIX [Concomitant]
  5. KLOR-CON [Concomitant]
  6. CALCIUM W/ VITAMIN D [Concomitant]
  7. ATENOLOL [Concomitant]
  8. COUMADIN [Concomitant]
  9. SINEMET [Concomitant]
  10. CELEXA [Concomitant]
  11. CLARITIN [Concomitant]

REACTIONS (1)
  - ATRIAL FIBRILLATION [None]
